FAERS Safety Report 19577021 (Version 1)
Quarter: 2021Q3

REPORT INFORMATION
  Report Type: Spontaneous
  Country: US (occurrence: US)
  Receive Date: 20210719
  Receipt Date: 20210719
  Transmission Date: 20211014
  Serious: No
  Sender: FDA-Public Use
  Company Number: US-GLENMARK PHARMACEUTICALS-2020GMK050443

PATIENT

DRUGS (3)
  1. MUPIROCIN OINTMENT USP, 2% [Suspect]
     Active Substance: MUPIROCIN
     Indication: FUNGAL SKIN INFECTION
     Dosage: ONCE OR TWICE A DAY (SECOND REFILL WITH PRESENCE OF FLASH OF LIGHT IMAGES OR ENERGY INSIDE THE OINTM
     Route: 061
     Dates: start: 20201103, end: 20201103
  2. MUPIROCIN OINTMENT USP, 2% [Suspect]
     Active Substance: MUPIROCIN
     Indication: SKIN BACTERIAL INFECTION
     Dosage: ONCE OR TWICE A DAY (FIRST REFILL WITHOUT PRESENCE OF FLASH OF LIGHT IMAGES OR ENERGY INSIDE THE OIN
     Route: 061
     Dates: start: 2020, end: 2020
  3. CLOTRIMAZOLE. [Concomitant]
     Active Substance: CLOTRIMAZOLE
     Indication: ANTIFUNGAL TREATMENT
     Dosage: UNK, BID
     Route: 065

REACTIONS (5)
  - Myalgia [Recovering/Resolving]
  - Product use in unapproved indication [Unknown]
  - Product quality issue [Unknown]
  - Malaise [Recovering/Resolving]
  - Suspected product contamination [Unknown]

NARRATIVE: CASE EVENT DATE: 2020
